FAERS Safety Report 23206190 (Version 1)
Quarter: 2023Q4

REPORT INFORMATION
  Report Type: Report from Study
  Country: GB (occurrence: GB)
  Receive Date: 20231120
  Receipt Date: 20231120
  Transmission Date: 20240109
  Serious: Yes (Hospitalization, Other)
  Sender: FDA-Public Use
  Company Number: GB-ALXN-A202209577

PATIENT
  Age: 66 Year
  Sex: Male
  Weight: 87 kg

DRUGS (1)
  1. ULTOMIRIS [Suspect]
     Active Substance: RAVULIZUMAB-CWVZ
     Indication: Product used for unknown indication
     Dosage: 3300 MG, 8 WEEKLY
     Route: 065

REACTIONS (18)
  - Urinary tract infection [Unknown]
  - Deafness unilateral [Not Recovered/Not Resolved]
  - Dyspnoea at rest [Unknown]
  - Gastrooesophageal reflux disease [Unknown]
  - Chest pain [Not Recovered/Not Resolved]
  - Micturition frequency decreased [Unknown]
  - Fall [Unknown]
  - Abdominal pain lower [Unknown]
  - Weight decreased [Unknown]
  - Palpitations [Not Recovered/Not Resolved]
  - Cold sweat [Unknown]
  - Dyspnoea exertional [Unknown]
  - Abdominal pain [Not Recovered/Not Resolved]
  - Fatigue [Not Recovered/Not Resolved]
  - Nausea [Unknown]
  - Back pain [Unknown]
  - Dyspnoea [Not Recovered/Not Resolved]
  - Chest discomfort [Unknown]

NARRATIVE: CASE EVENT DATE: 20230101
